FAERS Safety Report 8405766-1 (Version None)
Quarter: 2012Q2

REPORT INFORMATION
  Report Type: 
  Country: None (occurrence: None)
  Receive Date: 20120529
  Receipt Date: 20090128
  Transmission Date: 20120825
  Serious: Yes (Hospitalization)
  Sender: FDA-Public Use
  Company Number: 02100-JPN-07-0167

PATIENT
  Age: 75 Year
  Sex: Female

DRUGS (12)
  1. SELTOUCH (FELBINAC) [Concomitant]
  2. METHYCOBAL (MECOBALAMIN) [Concomitant]
  3. SELBEX (TEPRENONE) [Concomitant]
  4. RIZE (CLOTIAZEPAM) [Concomitant]
  5. ISOSORBIDE MONONITRATE [Concomitant]
  6. PLETAL [Suspect]
     Indication: CEREBRAL INFARCTION
     Dosage: 50 MG, BID, ORAL
     Route: 048
     Dates: start: 20070426
  7. PLETAL [Suspect]
     Indication: CEREBRAL INFARCTION
     Dosage: 50 MG, BID, ORAL
     Route: 048
     Dates: start: 20040805, end: 20070316
  8. ZOLPIDEM TARTRATE [Concomitant]
  9. GERBESSER R (DILTIAZEM HYDROCHLORIDE) [Concomitant]
  10. EXCELASE (ENZYMES NOS) [Concomitant]
  11. ATARAX [Concomitant]
  12. LENDORM [Concomitant]

REACTIONS (23)
  - PERIARTHRITIS [None]
  - PRURITUS [None]
  - ABDOMINAL DISCOMFORT [None]
  - IRRITABILITY [None]
  - ACTIVITIES OF DAILY LIVING IMPAIRED [None]
  - FEMORAL NECK FRACTURE [None]
  - SPASTIC PARALYSIS [None]
  - ROAD TRAFFIC ACCIDENT [None]
  - OSTEOPOROSIS [None]
  - INFLUENZA [None]
  - FALL [None]
  - TREATMENT NONCOMPLIANCE [None]
  - SOMNOLENCE [None]
  - ANAEMIA [None]
  - PARALYSIS FLACCID [None]
  - RADIUS FRACTURE [None]
  - MULTIPLE INJURIES [None]
  - DIARRHOEA [None]
  - HYPERTENSION [None]
  - LOWER LIMB FRACTURE [None]
  - ANXIETY [None]
  - BLOOD CREATINE PHOSPHOKINASE INCREASED [None]
  - HAEMOLYSIS [None]
